FAERS Safety Report 5901155-X (Version None)
Quarter: 2008Q3

REPORT INFORMATION
  Report Type: 
  Country: None (occurrence: None)
  Receive Date: 20080929
  Receipt Date: 20080916
  Transmission Date: 20090109
  Serious: Yes (Disabling)
  Sender: FDA-Public Use
  Company Number: IT-ROCHE-571036

PATIENT
  Sex: Male
  Weight: 65 kg

DRUGS (2)
  1. PEGASYS [Suspect]
     Dosage: DOSE 180, STRENGTH: 180.
     Route: 065
     Dates: start: 20060102, end: 20060310
  2. RIBAVIRIN [Suspect]
     Dosage: DOSE: 1000.
     Route: 065
     Dates: start: 20060102, end: 20060310

REACTIONS (3)
  - HERPES VIRUS INFECTION [None]
  - IIIRD NERVE PARALYSIS [None]
  - NEUROPATHY PERIPHERAL [None]
